FAERS Safety Report 7824888-7 (Version None)
Quarter: 2011Q4

REPORT INFORMATION
  Report Type: 
  Country: None (occurrence: None)
  Receive Date: 20111019
  Receipt Date: 20110216
  Transmission Date: 20120403
  Serious: No
  Sender: FDA-Public Use
  Company Number: US-BRISTOL-MYERS SQUIBB COMPANY-15554785

PATIENT
  Sex: Female
  Weight: 66 kg

DRUGS (2)
  1. XALATAN [Concomitant]
     Dosage: EYEDROPS
  2. AVALIDE [Suspect]

REACTIONS (1)
  - ADVERSE EVENT [None]
